FAERS Safety Report 6973623-3 (Version None)
Quarter: 2010Q3

REPORT INFORMATION
  Report Type: 
  Country: None (occurrence: None)
  Receive Date: 20100909
  Receipt Date: 20100826
  Transmission Date: 20110219
  Serious: Yes (Hospitalization)
  Sender: FDA-Public Use
  Company Number: US-ELI_LILLY_AND_COMPANY-US201008008348

PATIENT
  Sex: Male

DRUGS (1)
  1. FORTEO [Suspect]
     Dosage: UNK, UNKNOWN

REACTIONS (6)
  - CEREBRAL HAEMORRHAGE [None]
  - HEADACHE [None]
  - MUSCLE DISORDER [None]
  - MYALGIA [None]
  - PAIN [None]
  - PYREXIA [None]
